FAERS Safety Report 7812601-9 (Version None)
Quarter: 2011Q4

REPORT INFORMATION
  Report Type: 
  Country: None (occurrence: None)
  Receive Date: 20111013
  Receipt Date: 20110929
  Transmission Date: 20120403
  Serious: Yes (Other)
  Sender: FDA-Public Use
  Company Number: DE-WATSON-2011-14805

PATIENT
  Sex: Male

DRUGS (3)
  1. RAPAFLO [Suspect]
     Indication: BLADDER OBSTRUCTION
     Dosage: 4 MG, DAILY
     Route: 048
     Dates: start: 20101129, end: 20101206
  2. TAMSULOSIN HCL [Concomitant]
     Indication: URINARY TRACT OBSTRUCTION
     Dosage: UNK
     Route: 065
  3. ASPIRIN [Concomitant]
     Indication: CORONARY ARTERY DISEASE
     Dosage: EVERY OTHER DAY
     Route: 065

REACTIONS (2)
  - DIZZINESS [None]
  - ARRHYTHMIA [None]
